FAERS Safety Report 20431492 (Version 1)
Quarter: 2022Q1

REPORT INFORMATION
  Report Type: Report from Study
  Country: US (occurrence: US)
  Receive Date: 20220204
  Receipt Date: 20220204
  Transmission Date: 20220423
  Serious: Yes (Hospitalization)
  Sender: FDA-Public Use
  Company Number: None

PATIENT

DRUGS (16)
  1. ONCASPAR [Suspect]
     Active Substance: PEGASPARGASE
     Indication: Acute lymphocytic leukaemia
     Dosage: 2500 IU/M2
     Route: 042
     Dates: start: 20191019, end: 20191019
  2. ONCASPAR [Suspect]
     Active Substance: PEGASPARGASE
     Dosage: 5700 IU, ONE DOSE
     Route: 042
     Dates: start: 20191101
  3. VENETOCLAX [Suspect]
     Active Substance: VENETOCLAX
     Indication: Acute lymphocytic leukaemia
     Dosage: 200 MG, QD
     Route: 048
     Dates: start: 20191016, end: 20191016
  4. VENETOCLAX [Suspect]
     Active Substance: VENETOCLAX
     Dosage: 400 MG, QD
     Route: 048
     Dates: start: 20191017, end: 20191017
  5. VENETOCLAX [Suspect]
     Active Substance: VENETOCLAX
     Dosage: 800 MG, QD
     Route: 048
     Dates: start: 20191018
  6. DASATINIB [Suspect]
     Active Substance: DASATINIB
     Indication: Acute lymphocytic leukaemia
     Dosage: 60 MG/M2, QD
     Route: 048
     Dates: start: 20191019
  7. VINCRISTINE [Suspect]
     Active Substance: VINCRISTINE
     Indication: Acute lymphocytic leukaemia
     Dosage: 2MG/M2
     Route: 042
     Dates: start: 20191019
  8. DEXAMETHASONE SODIUM SUCCINATE [Suspect]
     Active Substance: DEXAMETHASONE SODIUM SUCCINATE
     Indication: Acute lymphocytic leukaemia
     Dosage: 10 MG/M2 BID
     Route: 048
     Dates: start: 20191019
  9. TN UNSPECIFIED [Concomitant]
     Indication: Nausea
     Dosage: 2 MG, QD
     Route: 048
     Dates: start: 20191021, end: 20191030
  10. TN UNSPECIFIED [Concomitant]
     Indication: Vomiting
     Dosage: 3.1 MG, QD
     Route: 062
     Dates: start: 20191030
  11. TN UNSPECIFIED [Concomitant]
     Indication: Reflux gastritis
     Dosage: 1 G, QD
     Route: 048
     Dates: start: 20191022
  12. ALLOPURINOL [Concomitant]
     Active Substance: ALLOPURINOL
     Indication: Tumour lysis syndrome
     Dosage: 300 MG
     Dates: start: 20191012, end: 20191021
  13. SODIUM CHLORIDE [Concomitant]
     Active Substance: SODIUM CHLORIDE
     Indication: Tumour lysis syndrome
     Dosage: UNK
  14. TN UNSPECIFIED [Concomitant]
     Indication: Rhinitis allergic
     Dosage: 10 MG, QD
     Route: 048
     Dates: start: 20191021
  15. TN UNSPECIFIED [Concomitant]
     Indication: Asthma
  16. TN UNSPECIFIED [Concomitant]
     Indication: Infection prophylaxis
     Dosage: 500 MG, QD
     Route: 048
     Dates: start: 20191021

REACTIONS (1)
  - Abdominal pain [Recovered/Resolved]

NARRATIVE: CASE EVENT DATE: 20191027
